FAERS Safety Report 9853972 (Version 2)
Quarter: 2014Q1

REPORT INFORMATION
  Report Type: Spontaneous
  Country: US (occurrence: US)
  Receive Date: 20140129
  Receipt Date: 20140304
  Transmission Date: 20141002
  Serious: No
  Sender: FDA-Public Use
  Company Number: US-PFIZER INC-2014025670

PATIENT
  Age: 85 Year
  Sex: Male

DRUGS (2)
  1. TOVIAZ [Suspect]
     Indication: HYPERTONIC BLADDER
     Dosage: 8 MG, 1X/DAY
     Dates: start: 201401
  2. TOVIAZ [Suspect]
     Indication: INCONTINENCE

REACTIONS (1)
  - Drug ineffective [Unknown]
